FAERS Safety Report 12577379 (Version 1)
Quarter: 2016Q3

REPORT INFORMATION
  Report Type: Report from Study
  Country: BR (occurrence: BR)
  Receive Date: 20160720
  Receipt Date: 20160720
  Transmission Date: 20161109
  Serious: Yes (Hospitalization)
  Sender: FDA-Public Use
  Company Number: BR-BIOGEN-2016BI00268116

PATIENT
  Sex: Female

DRUGS (1)
  1. AVONEX [Suspect]
     Active Substance: INTERFERON BETA-1A
     Indication: MULTIPLE SCLEROSIS
     Dosage: ON SUNDAYS
     Route: 065
     Dates: start: 201505, end: 201604

REACTIONS (9)
  - Asthenia [Unknown]
  - Hypoacusis [Unknown]
  - Multiple sclerosis relapse [Recovered/Resolved with Sequelae]
  - Gait disturbance [Unknown]
  - Tremor [Unknown]
  - Hypertonic bladder [Unknown]
  - Hemiparesis [Recovered/Resolved with Sequelae]
  - Balance disorder [Unknown]
  - Feeling abnormal [Unknown]

NARRATIVE: CASE EVENT DATE: 2015
